FAERS Safety Report 16321431 (Version 1)
Quarter: 2019Q2

REPORT INFORMATION
  Report Type: Report from Study
  Country: US (occurrence: US)
  Receive Date: 20190516
  Receipt Date: 20190516
  Transmission Date: 20190711
  Serious: Yes (Other)
  Sender: FDA-Public Use
  Company Number: US-ASTELLAS-2019US020723

PATIENT
  Age: 79 Year
  Sex: Male

DRUGS (2)
  1. HYDROCODONE [Concomitant]
     Active Substance: HYDROCODONE
     Indication: PRODUCT USED FOR UNKNOWN INDICATION
     Dosage: UNK UNK, UNKNOWN FREQ.
     Route: 065
     Dates: start: 20190220
  2. ENZALUTAMIDE [Suspect]
     Active Substance: ENZALUTAMIDE
     Indication: HORMONE-REFRACTORY PROSTATE CANCER
     Route: 048
     Dates: start: 20180924

REACTIONS (10)
  - Back pain [Unknown]
  - Musculoskeletal pain [Unknown]
  - Gait inability [Unknown]
  - Pain [Unknown]
  - Limb discomfort [Unknown]
  - Malignant neoplasm progression [Unknown]
  - Dysstasia [Unknown]
  - Gait disturbance [Unknown]
  - Malaise [Unknown]
  - Fall [Unknown]

NARRATIVE: CASE EVENT DATE: 20190201
